FAERS Safety Report 17742606 (Version 2)
Quarter: 2020Q4

REPORT INFORMATION
  Report Type: Spontaneous
  Country: US (occurrence: US)
  Receive Date: 20200504
  Receipt Date: 20201028
  Transmission Date: 20210113
  Serious: Yes (Hospitalization, Other)
  Sender: FDA-Public Use
  Company Number: US-TEVA-2020-US-1228345

PATIENT
  Age: 52 Year
  Sex: Male

DRUGS (101)
  1. NEXIUM [Concomitant]
     Active Substance: ESOMEPRAZOLE MAGNESIUM
  2. FLUCONAZOLE. [Concomitant]
     Active Substance: FLUCONAZOLE
  3. TERBINAFINE. [Concomitant]
     Active Substance: TERBINAFINE
  4. ZOLPIDEM [Concomitant]
     Active Substance: ZOLPIDEM TARTRATE
  5. MUPIROCIN. [Concomitant]
     Active Substance: MUPIROCIN
  6. ANUCORT-HC [Concomitant]
     Active Substance: HYDROCORTISONE ACETATE
  7. AVELOX [Concomitant]
     Active Substance: MOXIFLOXACIN HYDROCHLORIDE
  8. ESCITALOPRAM [Concomitant]
     Active Substance: ESCITALOPRAM OXALATE
  9. CONDYLOX [Concomitant]
     Active Substance: PODOFILOX
  10. SULFAMETH/TRIMETH [Concomitant]
     Active Substance: SULFAMETHOXAZOLE\TRIMETHOPRIM
  11. CLINDAMYCIN. [Concomitant]
     Active Substance: CLINDAMYCIN
  12. FENTANYL. [Concomitant]
     Active Substance: FENTANYL
  13. VITAMIN B1 [Concomitant]
     Active Substance: THIAMINE HYDROCHLORIDE
  14. GABAPENTIN. [Concomitant]
     Active Substance: GABAPENTIN
  15. KALETRA [Suspect]
     Active Substance: LOPINAVIR\RITONAVIR
     Route: 065
  16. LEVETIRACETAM. [Concomitant]
     Active Substance: LEVETIRACETAM
  17. NYSTATIN. [Concomitant]
     Active Substance: NYSTATIN
  18. CLOTRIMAZOLE. [Concomitant]
     Active Substance: CLOTRIMAZOLE
  19. BACTROBAN [Concomitant]
     Active Substance: MUPIROCIN\MUPIROCIN CALCIUM
  20. ORAVIG [Concomitant]
     Active Substance: MICONAZOLE
  21. WAL FEX [Concomitant]
     Active Substance: FEXOFENADINE HYDROCHLORIDE
  22. FOLIC ACID. [Concomitant]
     Active Substance: FOLIC ACID
  23. PROMETHEGAN [Concomitant]
     Active Substance: PROMETHAZINE HYDROCHLORIDE
  24. LEVOFLOXACIN. [Concomitant]
     Active Substance: LEVOFLOXACIN
  25. METRONIDAZOLE. [Concomitant]
     Active Substance: METRONIDAZOLE
  26. CETIRIZINE [Concomitant]
     Active Substance: CETIRIZINE HYDROCHLORIDE
  27. HYDROXYZINE HCL [Concomitant]
     Active Substance: HYDROXYZINE HYDROCHLORIDE
  28. MUCUS RELIEF [Concomitant]
     Active Substance: GUAIFENESIN
  29. TACROLIMUS. [Concomitant]
     Active Substance: TACROLIMUS
  30. HALOBETASOL [Concomitant]
     Active Substance: HALOBETASOL PROPIONATE
  31. AMMONIUM LACTATE. [Concomitant]
     Active Substance: AMMONIUM LACTATE
  32. AMLODIPINE BESYLATE. [Concomitant]
     Active Substance: AMLODIPINE BESYLATE
  33. PROTONIX [Concomitant]
     Active Substance: PANTOPRAZOLE SODIUM
  34. LISINOPRIL. [Concomitant]
     Active Substance: LISINOPRIL
  35. TENOFOVIR [Suspect]
     Active Substance: TENOFOVIR
     Indication: HIV INFECTION
     Dosage: MCLEODS
     Route: 065
     Dates: start: 201803, end: 20180621
  36. MAG G [Concomitant]
     Active Substance: MAGNESIUM GLUCONATE
  37. AMOXICILLIN. [Concomitant]
     Active Substance: AMOXICILLIN
  38. PROMETHAZINE [Concomitant]
     Active Substance: PROMETHAZINE HYDROCHLORIDE
  39. CLOTRIMAZOLE AND BETAMETHASONE [Concomitant]
     Active Substance: BETAMETHASONE\CLOTRIMAZOLE
  40. ABACAVIR. [Concomitant]
     Active Substance: ABACAVIR
  41. ESOMEPRAZOLE MAGNESIUM. [Concomitant]
     Active Substance: ESOMEPRAZOLE MAGNESIUM
  42. PROVENTIL HFA [Concomitant]
     Active Substance: ALBUTEROL SULFATE
  43. TRAZODONE [Concomitant]
     Active Substance: TRAZODONE HYDROCHLORIDE
  44. DESCOVY [Concomitant]
     Active Substance: EMTRICITABINE\TENOFOVIR ALAFENAMIDE FUMARATE
  45. KLOR-CON [Concomitant]
     Active Substance: POTASSIUM CHLORIDE
  46. VIREAD [Suspect]
     Active Substance: TENOFOVIR DISOPROXIL FUMARATE
     Route: 048
     Dates: start: 2001, end: 201801
  47. VERAMYST [Concomitant]
     Active Substance: FLUTICASONE FUROATE
  48. AZITHROMYCIN ANHYDROUS. [Concomitant]
     Active Substance: AZITHROMYCIN ANHYDROUS
  49. MORPHINE SULFATE. [Concomitant]
     Active Substance: MORPHINE SULFATE
  50. SERTRALINE [Concomitant]
     Active Substance: SERTRALINE HYDROCHLORIDE
  51. IMIQUIMOD. [Concomitant]
     Active Substance: IMIQUIMOD
  52. ACEPHEN [Concomitant]
     Active Substance: ACETAMINOPHEN
  53. LEXAPRO [Concomitant]
     Active Substance: ESCITALOPRAM OXALATE
  54. CIPROFLOXACIN. [Concomitant]
     Active Substance: CIPROFLOXACIN
  55. FLUOCINONIDE. [Concomitant]
     Active Substance: FLUOCINONIDE
  56. ELIQUIS [Concomitant]
     Active Substance: APIXABAN
  57. KETOCONAZOLE. [Concomitant]
     Active Substance: KETOCONAZOLE
  58. TENOFOVIR TEVA [Suspect]
     Active Substance: TENOFOVIR
     Indication: HIV INFECTION
     Route: 065
     Dates: start: 201801, end: 20180621
  59. PHENADOZ [Concomitant]
     Active Substance: PROMETHAZINE HYDROCHLORIDE
  60. CHLORHEXIDINE [Concomitant]
     Active Substance: CHLORHEXIDINE
  61. METOPROLOL. [Concomitant]
     Active Substance: METOPROLOL
  62. MEGACE [Concomitant]
     Active Substance: MEGESTROL ACETATE
  63. VITAMIN B6 [Concomitant]
     Active Substance: PYRIDOXINE HYDROCHLORIDE
  64. LOPERAMIDE [Concomitant]
     Active Substance: LOPERAMIDE
  65. ALPRAZOLAM. [Concomitant]
     Active Substance: ALPRAZOLAM
  66. LORAZEPAM. [Concomitant]
     Active Substance: LORAZEPAM
  67. CALCIPOTRIENE. [Concomitant]
     Active Substance: CALCIPOTRIENE
  68. CYCLOPHOSPHAMIDE. [Concomitant]
     Active Substance: CYCLOPHOSPHAMIDE
  69. FUROSEMIDE. [Concomitant]
     Active Substance: FUROSEMIDE
  70. DOXEPIN [Concomitant]
     Active Substance: DOXEPIN
  71. INSULIN [Concomitant]
     Active Substance: INSULIN NOS
  72. POTASSIUM CHLORIDE. [Concomitant]
     Active Substance: POTASSIUM CHLORIDE
  73. AMOXI CLAV [Concomitant]
     Active Substance: AMOXICILLIN\CLAVULANATE POTASSIUM
  74. ENSURE ACTIVE HIGH PROTEIN [Concomitant]
  75. HYDROCORTISONE VALERATE. [Concomitant]
     Active Substance: HYDROCORTISONE VALERATE
  76. DIAZEPAM. [Concomitant]
     Active Substance: DIAZEPAM
  77. AMCINONIDE. [Concomitant]
     Active Substance: AMCINONIDE
  78. PREDNISONE. [Concomitant]
     Active Substance: PREDNISONE
  79. DOXYCYCLINE HYCLATE. [Concomitant]
     Active Substance: DOXYCYCLINE HYCLATE
  80. OFLOXACIN. [Concomitant]
     Active Substance: OFLOXACIN
  81. VIREAD [Suspect]
     Active Substance: TENOFOVIR DISOPROXIL FUMARATE
     Indication: HIV INFECTION
     Route: 048
     Dates: start: 200912, end: 201801
  82. ATENOLOL. [Concomitant]
     Active Substance: ATENOLOL
  83. BISACODYL. [Concomitant]
     Active Substance: BISACODYL
  84. ALLEGRA [Concomitant]
     Active Substance: FEXOFENADINE HYDROCHLORIDE
  85. FLUOXETINE [Concomitant]
     Active Substance: FLUOXETINE HYDROCHLORIDE
  86. KENALOG [Concomitant]
     Active Substance: TRIAMCINOLONE ACETONIDE
  87. METHYLPREDNISOLONE. [Concomitant]
     Active Substance: METHYLPREDNISOLONE
  88. MOXIFLOXACIN. [Concomitant]
     Active Substance: MOXIFLOXACIN
  89. TRIAMCINOLONE [Concomitant]
     Active Substance: TRIAMCINOLONE
  90. OMEPRAZOLE. [Concomitant]
     Active Substance: OMEPRAZOLE
  91. CLOBETASOL PROPIONATE. [Concomitant]
     Active Substance: CLOBETASOL PROPIONATE
  92. ONDANSETRON [Concomitant]
     Active Substance: ONDANSETRON
  93. FEXOFENADINE [Concomitant]
     Active Substance: FEXOFENADINE HYDROCHLORIDE
  94. DAPSONE. [Concomitant]
     Active Substance: DAPSONE
  95. PROPRANOLOL [Concomitant]
     Active Substance: PROPRANOLOL HYDROCHLORIDE
  96. HYDROCODONE/ACETAMINOPHEN [Concomitant]
     Active Substance: ACETAMINOPHEN\HYDROCODONE
  97. CEPHALEXIN. [Concomitant]
     Active Substance: CEPHALEXIN
  98. PROAIR HFA [Concomitant]
     Active Substance: ALBUTEROL SULFATE
  99. CALCITRIOL. [Concomitant]
     Active Substance: CALCITRIOL
  100. TIVICAY [Concomitant]
     Active Substance: DOLUTEGRAVIR SODIUM
  101. ZIAGEN [Concomitant]
     Active Substance: ABACAVIR SULFATE

REACTIONS (5)
  - Renal tubular acidosis [Unknown]
  - Renal failure [Not Recovered/Not Resolved]
  - Anti-neutrophil cytoplasmic antibody positive vasculitis [Unknown]
  - Chronic kidney disease [Not Recovered/Not Resolved]
  - Bone metabolism disorder [Not Recovered/Not Resolved]

NARRATIVE: CASE EVENT DATE: 20180426
